FAERS Safety Report 7444330-8 (Version None)
Quarter: 2011Q2

REPORT INFORMATION
  Report Type: 
  Country: None (occurrence: None)
  Receive Date: 20110419
  Receipt Date: 20110406
  Transmission Date: 20111010
  Serious: Yes (Hospitalization, Other)
  Sender: FDA-Public Use
  Company Number: 026772

PATIENT
  Sex: Female

DRUGS (3)
  1. BENADRYL [Concomitant]
  2. TYLENOL (CAPLET) [Concomitant]
  3. CIMZIA [Suspect]
     Indication: CROHN'S DISEASE
     Dosage: (SUBCUTANEOUS)
     Route: 058
     Dates: start: 20090601

REACTIONS (11)
  - NAUSEA [None]
  - BLOOD GLUCOSE DECREASED [None]
  - HEARING IMPAIRED [None]
  - VOMITING [None]
  - HEADACHE [None]
  - RENAL FAILURE [None]
  - HYPOTENSION [None]
  - UNRESPONSIVE TO STIMULI [None]
  - RESUSCITATION [None]
  - RESPIRATORY ARREST [None]
  - CARPAL TUNNEL SYNDROME [None]
